FAERS Safety Report 9117116 (Version 1)
Quarter: 2013Q1

REPORT INFORMATION
  Report Type: Spontaneous
  Country: AU (occurrence: AU)
  Receive Date: 20130225
  Receipt Date: 20130225
  Transmission Date: 20140127
  Serious: Yes (Other)
  Sender: FDA-Public Use
  Company Number: AU-ELI_LILLY_AND_COMPANY-AU201302003403

PATIENT
  Sex: Female

DRUGS (3)
  1. ZYPREXA [Suspect]
     Indication: BIPOLAR II DISORDER
     Dosage: 1 DF, UNKNOWN
     Dates: end: 2012
  2. ABILIFY [Concomitant]
  3. SODIUM VALPROATE [Concomitant]

REACTIONS (6)
  - Gastrointestinal carcinoma [Unknown]
  - Liver disorder [Unknown]
  - Tooth loss [Unknown]
  - Visual impairment [Unknown]
  - Alopecia [Unknown]
  - Gastrointestinal disorder [Unknown]
